FAERS Safety Report 5286581-7 (Version None)
Quarter: 2007Q1

REPORT INFORMATION
  Report Type: 
  Country: None (occurrence: None)
  Receive Date: 20070104
  Receipt Date: 20060919
  Transmission Date: 20070707
  Serious: No
  Sender: FDA-Public Use
  Company Number: BDI-008662

PATIENT
  Age: 43 Year
  Sex: Female
  Weight: 63.64 kg

DRUGS (3)
  1. MULTIHANCE [Suspect]
     Indication: CEREBROVASCULAR ACCIDENT
     Dosage: 20 ML ONCE IV
     Route: 042
     Dates: start: 20060622, end: 20060622
  2. MULTIHANCE [Suspect]
     Indication: NUCLEAR MAGNETIC RESONANCE IMAGING
     Dosage: 20 ML ONCE IV
     Route: 042
     Dates: start: 20060622, end: 20060622
  3. MULTIHANCE [Suspect]
     Indication: TRANSIENT ISCHAEMIC ATTACK
     Dosage: 20 ML ONCE IV
     Route: 042
     Dates: start: 20060622, end: 20060622

REACTIONS (1)
  - HYPERSENSITIVITY [None]
